FAERS Safety Report 8338448-5 (Version None)
Quarter: 2012Q2

REPORT INFORMATION
  Report Type: 
  Country: None (occurrence: None)
  Receive Date: 20120504
  Receipt Date: 20120423
  Transmission Date: 20120825
  Serious: Yes (Other)
  Sender: FDA-Public Use
  Company Number: JP-ROCHE-1061964

PATIENT
  Age: 69 Year
  Sex: Male

DRUGS (1)
  1. AVASTIN [Suspect]
     Indication: COLON CANCER
     Route: 041
     Dates: start: 20081009, end: 20090305

REACTIONS (3)
  - EFFUSION [None]
  - WOUND DEHISCENCE [None]
  - WOUND INFECTION [None]
